FAERS Safety Report 5894799-5 (Version None)
Quarter: 2008Q3

REPORT INFORMATION
  Report Type: 
  Country: None (occurrence: None)
  Receive Date: 20080922
  Receipt Date: 20080724
  Transmission Date: 20090109
  Serious: Yes (Other)
  Sender: FDA-Public Use
  Company Number: 2008EU001493

PATIENT
  Age: 11 Year
  Sex: Male
  Weight: 37 kg

DRUGS (2)
  1. PROGRAF [Suspect]
     Indication: TRANSPLANT
     Dosage: 1.7 MG, BID, ORAL
     Route: 048
     Dates: start: 20010101
  2. CELLCEPT [Suspect]
     Indication: TRANSPLANT
     Dosage: 750 MG, UID/QD, ORAL
     Route: 048
     Dates: start: 20010101

REACTIONS (9)
  - ALLERGY TO PLANTS [None]
  - BRONCHIAL HYPERREACTIVITY [None]
  - DELAYED PUBERTY [None]
  - GASTRITIS [None]
  - GROWTH RETARDATION [None]
  - LATEX ALLERGY [None]
  - MULTIPLE ALLERGIES [None]
  - RHINITIS [None]
  - SEASONAL ALLERGY [None]
